FAERS Safety Report 5091371-4 (Version None)
Quarter: 2006Q3

REPORT INFORMATION
  Report Type: 
  Country: None (occurrence: None)
  Receive Date: 20060727
  Receipt Date: 20060420
  Transmission Date: 20061208
  Serious: Yes (Other)
  Sender: FDA-Public Use
  Company Number: 2005127077

PATIENT
  Age: 85 Year
  Sex: Male
  Weight: 89.8122 kg

DRUGS (6)
  1. LYRICA [Suspect]
     Indication: PAIN
     Dosage: 150 MG (50 MG,3 IN 1 D),ORAL
     Route: 048
     Dates: start: 20060101, end: 20060101
  2. LYRICA [Suspect]
     Indication: POST HERPETIC NEURALGIA
     Dosage: 150 MG (50 MG,3 IN 1 D),ORAL
     Route: 048
     Dates: start: 20060101, end: 20060101
  3. NEURONTIN [Suspect]
     Indication: PAIN
     Dates: end: 20050101
  4. WARFARIN SODIUM [Concomitant]
  5. AMOXICILLIN W/CLAVULANATE POTASSIUM (AMOXICILLIN, CLAVULANATE POTASSIU [Concomitant]
  6. XANAX [Concomitant]

REACTIONS (5)
  - DIZZINESS [None]
  - DRUG INEFFECTIVE [None]
  - GAIT DISTURBANCE [None]
  - MUSCLE SPASMS [None]
  - MYALGIA [None]
